FAERS Safety Report 9632916 (Version 3)
Quarter: 2013Q4

REPORT INFORMATION
  Report Type: Report from Study
  Country: BR (occurrence: BR)
  Receive Date: 20131018
  Receipt Date: 20131113
  Transmission Date: 20140711
  Serious: No
  Sender: FDA-Public Use
  Company Number: BR-ABBVIE-13P-020-1157838-00

PATIENT
  Sex: Female
  Weight: 44 kg

DRUGS (5)
  1. HUMIRA [Suspect]
     Indication: CROHN^S DISEASE
     Dosage: WEEK 0
     Route: 058
     Dates: start: 20100401, end: 20100401
  2. HUMIRA [Suspect]
     Dosage: WEEK 1
     Route: 058
  3. HUMIRA [Suspect]
     Route: 058
  4. HUMIRA [Suspect]
     Route: 058
  5. AZATHIOPRINE [Concomitant]
     Indication: CROHN^S DISEASE
     Dosage: AT NIGHT
     Route: 048
     Dates: start: 2004

REACTIONS (3)
  - Anal ulcer [Unknown]
  - Anal polyp [Unknown]
  - Fistula [Recovering/Resolving]
